FAERS Safety Report 5720747-4 (Version None)
Quarter: 2008Q2

REPORT INFORMATION
  Report Type: 
  Country: None (occurrence: None)
  Receive Date: 20080429
  Receipt Date: 20080425
  Transmission Date: 20081010
  Serious: Yes (Hospitalization, Disabling)
  Sender: FDA-Public Use
  Company Number: PE-BRISTOL-MYERS SQUIBB COMPANY-13270038

PATIENT
  Age: 70 Year
  Sex: Male

DRUGS (16)
  1. CISPLATIN [Suspect]
     Indication: GASTRIC CANCER
     Route: 041
     Dates: start: 20060104, end: 20060104
  2. FLUOROURACIL [Suspect]
     Indication: GASTRIC CANCER
     Route: 041
     Dates: start: 20060104, end: 20060109
  3. DEXTROSE 5% [Concomitant]
     Indication: DEHYDRATION
     Route: 041
     Dates: start: 20051221, end: 20060127
  4. POTASSIUM CHLORIDE [Concomitant]
     Indication: DEHYDRATION
     Route: 041
     Dates: start: 20051221, end: 20060127
  5. SODIUM CHLORIDE [Concomitant]
     Indication: DEHYDRATION
     Dosage: TAKEN 600ML 1 IN 1 DAY VIA INTRAVENOUS DRIP FOR DEHYDRATION ON 04JAN06-04JAN06 (1 DAY).
     Route: 041
     Dates: start: 20051221, end: 20060127
  6. DEXAMETHASONE [Concomitant]
     Indication: ANTIEMETIC SUPPORTIVE CARE
     Dosage: RESTARTED ON 09JAN06-11JAN06 (3 DAYS) 24 GRAM 3 IN 1 DAY IV FOR ENCEPHALOPATHY
     Route: 042
     Dates: start: 20060104, end: 20060108
  7. GRANISETRON HCL [Concomitant]
     Indication: ANTIEMETIC SUPPORTIVE CARE
     Route: 042
     Dates: start: 20060104, end: 20060104
  8. MANNITOL [Concomitant]
     Indication: DIURETIC THERAPY
     Route: 041
     Dates: start: 20060104, end: 20060104
  9. FUROSEMIDE [Concomitant]
     Indication: DIURETIC THERAPY
     Route: 042
     Dates: start: 20060104, end: 20060104
  10. MAGNESIUM SULFATE [Concomitant]
     Indication: PROPHYLAXIS
     Route: 042
     Dates: start: 20060104, end: 20060104
  11. AMIKACIN [Concomitant]
     Indication: URINARY TRACT INFECTION
     Route: 042
     Dates: start: 20060102, end: 20060106
  12. CODEINE SUL TAB [Concomitant]
     Indication: PAIN
     Route: 042
     Dates: start: 20060102, end: 20060127
  13. RANITIDINE [Concomitant]
     Indication: PAIN
     Dosage: THERAPY INTERRUPTED ON AN UNSPECIFIED DATE AND RESTARTED ON 06-JAN-2006.
     Route: 042
     Dates: start: 20051221, end: 20060127
  14. METOCLOPRAMIDE [Concomitant]
     Indication: NAUSEA
     Route: 042
     Dates: start: 20060102, end: 20060104
  15. ONDANSETRON [Concomitant]
     Indication: ANTIEMETIC SUPPORTIVE CARE
     Route: 042
     Dates: start: 20060105, end: 20060108
  16. HYOSCINE [Concomitant]
     Indication: PAIN
     Route: 042
     Dates: start: 20051230, end: 20060102

REACTIONS (14)
  - ABDOMINAL PAIN [None]
  - ANOREXIA [None]
  - ATELECTASIS [None]
  - CEREBRAL ATROPHY [None]
  - ENCEPHALOPATHY [None]
  - FALL [None]
  - HYPOKALAEMIA [None]
  - HYPONATRAEMIA [None]
  - LEUKOPENIA [None]
  - MELAENA [None]
  - METABOLIC ENCEPHALOPATHY [None]
  - METASTASES TO LIVER [None]
  - PLEURAL EFFUSION [None]
  - TRAUMATIC BRAIN INJURY [None]
